FAERS Safety Report 7821402-7 (Version None)
Quarter: 2011Q4

REPORT INFORMATION
  Report Type: 
  Country: None (occurrence: None)
  Receive Date: 20111018
  Receipt Date: 20111011
  Transmission Date: 20120403
  Serious: Yes (Hospitalization)
  Sender: FDA-Public Use
  Company Number: US-ACTELION-A-US2011-47985

PATIENT

DRUGS (2)
  1. TRACLEER [Suspect]
     Indication: PULMONARY ARTERIAL HYPERTENSION
     Dosage: UNK
     Route: 048
     Dates: start: 20100317
  2. VIAGRA [Concomitant]

REACTIONS (5)
  - CATHETERISATION CARDIAC [None]
  - BLOOD POTASSIUM DECREASED [None]
  - SYNCOPE [None]
  - HEAD INJURY [None]
  - FALL [None]
